FAERS Safety Report 6213225-X (Version None)
Quarter: 2009Q2

REPORT INFORMATION
  Report Type: 
  Country: None (occurrence: None)
  Receive Date: 20090601
  Receipt Date: 20090601
  Transmission Date: 20091009
  Serious: Yes (Life-Threatening, Hospitalization, Disabling)
  Sender: FDA-Public Use
  Company Number: None

PATIENT
  Sex: Female
  Weight: 81.6475 kg

DRUGS (2)
  1. LYRICA [Suspect]
     Indication: FIBROMYALGIA
     Dosage: 500 MGM. DAILY PO 6MO., 3MO AT 500MGM.
     Route: 048
  2. LYRICA [Suspect]
     Indication: FIBROMYALGIA
     Dosage: 500 MGM. DAILY PO 6MO., 3MO AT 500MGM.
     Route: 048

REACTIONS (7)
  - ANXIETY [None]
  - CONFUSIONAL STATE [None]
  - MENTAL DISORDER [None]
  - OEDEMA PERIPHERAL [None]
  - PLEURAL EFFUSION [None]
  - VISUAL IMPAIRMENT [None]
  - WEIGHT INCREASED [None]
